FAERS Safety Report 5132179-0 (Version None)
Quarter: 2006Q4

REPORT INFORMATION
  Report Type: 
  Country: None (occurrence: None)
  Receive Date: 20061017
  Receipt Date: 20061004
  Transmission Date: 20070319
  Serious: Yes (Other)
  Sender: FDA-Public Use
  Company Number: 230263M06USA

PATIENT
  Age: 31 Year
  Sex: Female

DRUGS (5)
  1. REBIF [Suspect]
     Indication: MULTIPLE SCLEROSIS
     Dosage: 44 MCG, 3 IN 1 WEEKS, SUBCUTANEOUS; 22 MCG
     Route: 058
     Dates: start: 20060801, end: 20060901
  2. REBIF [Suspect]
     Indication: MULTIPLE SCLEROSIS
     Dosage: 44 MCG, 3 IN 1 WEEKS, SUBCUTANEOUS; 22 MCG
     Route: 058
     Dates: start: 20060901, end: 20060928
  3. COPAXONE [Suspect]
  4. KEPPRA [Concomitant]
  5. NORVASC [Concomitant]

REACTIONS (2)
  - CONVULSION [None]
  - FACIAL PALSY [None]
